FAERS Safety Report 16724734 (Version 9)
Quarter: 2020Q1

REPORT INFORMATION
  Report Type: Spontaneous
  Country: US (occurrence: US)
  Receive Date: 20190821
  Receipt Date: 20200309
  Transmission Date: 20200409
  Serious: No
  Sender: FDA-Public Use
  Company Number: US-PFIZER INC-2019354978

PATIENT
  Age: 80 Year
  Sex: Female
  Weight: 53 kg

DRUGS (2)
  1. DICLOFENAC EPOLAMINE [Suspect]
     Active Substance: DICLOFENAC EPOLAMINE
     Indication: BACK PAIN
  2. DICLOFENAC EPOLAMINE [Suspect]
     Active Substance: DICLOFENAC EPOLAMINE
     Indication: BACK DISORDER
     Dosage: 1 DF, 2X/DAY (1 PATCH TRANSDERMAL EVERY TWELVE HOURS AS NEEDED)
     Route: 062
     Dates: start: 20190617, end: 2019

REACTIONS (3)
  - Product physical issue [Unknown]
  - Poor quality product administered [Unknown]
  - Drug ineffective [Not Recovered/Not Resolved]

NARRATIVE: CASE EVENT DATE: 20190618
